FAERS Safety Report 25416998 (Version 1)
Quarter: 2025Q2

REPORT INFORMATION
  Report Type: Spontaneous
  Country: JP (occurrence: JP)
  Receive Date: 20250610
  Receipt Date: 20250610
  Transmission Date: 20250716
  Serious: Yes (Other)
  Sender: ADAPTIS PHARMA INDIA
  Company Number: JP-Adaptis Pharma Private Limited-2178413

PATIENT
  Age: 70 Year
  Sex: Female

DRUGS (1)
  1. PREGABALIN [Suspect]
     Active Substance: PREGABALIN
     Indication: Scoliosis

REACTIONS (1)
  - Dementia with Lewy bodies [Recovered/Resolved]
